FAERS Safety Report 7462437-6 (Version None)
Quarter: 2011Q2

REPORT INFORMATION
  Report Type: 
  Country: None (occurrence: None)
  Receive Date: 20110506
  Receipt Date: 20110429
  Transmission Date: 20111010
  Serious: Yes (Death, Hospitalization)
  Sender: FDA-Public Use
  Company Number: SE-NOVOPROD-321925

PATIENT
  Sex: Male
  Weight: 64 kg

DRUGS (2)
  1. LANTUS [Concomitant]
     Indication: TYPE 1 DIABETES MELLITUS
     Dosage: 26 E
     Dates: start: 20041204
  2. INSULIN [Suspect]
     Indication: TYPE 1 DIABETES MELLITUS
     Dosage: 30-40 E
     Dates: start: 20041228, end: 20110117

REACTIONS (3)
  - COMA [None]
  - DIABETIC KETOACIDOSIS [None]
  - AUTOIMMUNE THYROIDITIS [None]
